FAERS Safety Report 9373665 (Version 2)
Quarter: 2013Q3

REPORT INFORMATION
  Report Type: Report from Study
  Country: FR (occurrence: FR)
  Receive Date: 20130627
  Receipt Date: 20130911
  Transmission Date: 20140515
  Serious: Yes (Hospitalization, Other)
  Sender: FDA-Public Use
  Company Number: PHHY2011FR17564

PATIENT
  Sex: Female

DRUGS (1)
  1. STI571 [Suspect]
     Indication: CHRONIC MYELOID LEUKAEMIA
     Dosage: 400 MG, DAILY
     Route: 048
     Dates: start: 20060809

REACTIONS (5)
  - Squamous cell carcinoma [Recovering/Resolving]
  - Second primary malignancy [Recovering/Resolving]
  - Tongue ulceration [Recovering/Resolving]
  - Anaemia [Unknown]
  - Ecchymosis [Unknown]
